FAERS Safety Report 5726409-1 (Version None)
Quarter: 2008Q2

REPORT INFORMATION
  Report Type: 
  Country: None (occurrence: None)
  Receive Date: 20080502
  Receipt Date: 20080429
  Transmission Date: 20081010
  Serious: Yes (Life-Threatening, Hospitalization, Other)
  Sender: FDA-Public Use
  Company Number: A0717853A

PATIENT
  Age: 74 Year
  Sex: Female
  Weight: 69 kg

DRUGS (20)
  1. ARIXTRA [Suspect]
     Indication: PULMONARY EMBOLISM
     Dosage: 7.5MG PER DAY
     Route: 058
     Dates: start: 20080318, end: 20080319
  2. NORVASC [Concomitant]
     Dosage: 10MG PER DAY
     Route: 048
     Dates: start: 20080315, end: 20080404
  3. CALCIUM CARBONATE [Concomitant]
     Dosage: 1250MG TWICE PER DAY
     Route: 048
     Dates: start: 20080306, end: 20080404
  4. HYDRALAZINE HCL [Concomitant]
     Dosage: 25MG THREE TIMES PER DAY
     Route: 042
     Dates: start: 20080307, end: 20080404
  5. LEVOFLOXACIN [Concomitant]
     Dosage: 250MG PER DAY
     Route: 048
     Dates: start: 20080322, end: 20080404
  6. COLCHICINE [Concomitant]
     Dosage: .6MG TWICE PER DAY
     Route: 048
     Dates: start: 20080306, end: 20080327
  7. DONEPEZIL HCL [Concomitant]
     Dosage: 5MG PER DAY
     Route: 048
     Dates: start: 20080306, end: 20080404
  8. ISOSORBIDE MONONITRATE [Concomitant]
     Dosage: 30MG IN THE MORNING
     Route: 048
     Dates: start: 20080318, end: 20080402
  9. METOCLOPRAMIDE [Concomitant]
     Dosage: 10MG AS REQUIRED
     Route: 042
     Dates: start: 20080318, end: 20080402
  10. SODIUM CHLORIDE INJ [Concomitant]
     Dates: end: 20080327
  11. MORPHINE [Concomitant]
     Dates: end: 20080404
  12. TYLENOL [Concomitant]
  13. OMEPRAZOLE [Concomitant]
     Dates: start: 20080306, end: 20080404
  14. PROBENECID [Concomitant]
     Dosage: 500MG TWICE PER DAY
     Route: 048
     Dates: start: 20080306, end: 20080404
  15. TRAMADOL HCL [Concomitant]
     Dosage: 500MG AS REQUIRED
     Route: 048
     Dates: start: 20080314, end: 20080404
  16. BLOOD TRANSFUSION [Concomitant]
  17. DOXEPIN HCL [Concomitant]
     Dosage: 150MG AT NIGHT
     Route: 048
     Dates: start: 20080308, end: 20080404
  18. ENOXAPARIN SODIUM [Concomitant]
     Dosage: 100MG PER DAY
     Route: 058
     Dates: start: 20080306, end: 20080317
  19. WARFARIN SODIUM [Concomitant]
     Route: 048
     Dates: start: 20080306, end: 20080317
  20. FUROSEMIDE [Concomitant]
     Dosage: 8MG PER DAY
     Route: 048
     Dates: start: 20080308, end: 20080317

REACTIONS (6)
  - ACTIVATED PARTIAL THROMBOPLASTIN TIME PROLONGED [None]
  - BLOOD CREATININE INCREASED [None]
  - HAEMATOMA [None]
  - HAEMORRHAGE [None]
  - INTERNATIONAL NORMALISED RATIO INCREASED [None]
  - MUSCLE INJURY [None]
